FAERS Safety Report 17401185 (Version 3)
Quarter: 2020Q1

REPORT INFORMATION
  Report Type: Spontaneous
  Country: US (occurrence: US)
  Receive Date: 20200211
  Receipt Date: 20200317
  Transmission Date: 20200409
  Serious: No
  Sender: FDA-Public Use
  Company Number: US-JNJFOC-20200200785

PATIENT
  Age: 37 Year
  Sex: Female
  Weight: 118.04 kg

DRUGS (7)
  1. INVEGA [Suspect]
     Active Substance: PALIPERIDONE
     Dosage: AT NIGHT
     Route: 048
     Dates: start: 201804
  2. INVEGA [Suspect]
     Active Substance: PALIPERIDONE
     Indication: SCHIZOPHRENIA
     Route: 048
     Dates: end: 201707
  3. INVEGA [Suspect]
     Active Substance: PALIPERIDONE
     Route: 048
     Dates: start: 201804
  4. SYNTHROID [Concomitant]
     Active Substance: LEVOTHYROXINE SODIUM
  5. OLANZAPINE. [Concomitant]
     Active Substance: OLANZAPINE
     Dates: start: 201809
  6. INVEGA [Suspect]
     Active Substance: PALIPERIDONE
     Dosage: 9 MG IN MORNING
     Route: 048
     Dates: start: 201804
  7. INVEGA [Suspect]
     Active Substance: PALIPERIDONE
     Route: 048
     Dates: start: 201707, end: 201801

REACTIONS (2)
  - Drug level below therapeutic [Unknown]
  - Influenza [Not Recovered/Not Resolved]

NARRATIVE: CASE EVENT DATE: 201803
